FAERS Safety Report 9071716 (Version 1)
Quarter: 2013Q1

REPORT INFORMATION
  Report Type: Spontaneous
  Country: CA (occurrence: CA)
  Receive Date: 20130206
  Receipt Date: 20130206
  Transmission Date: 20140127
  Serious: Yes (Other)
  Sender: FDA-Public Use
  Company Number: CA-B.I. PHARMACEUTICALS,INC./RIDGEFIELD-2013-CN-00174CN

PATIENT
  Age: 73 Year
  Sex: Female

DRUGS (9)
  1. PRADAX [Suspect]
     Dosage: 300 MG
     Route: 048
  2. DIOVAN [Concomitant]
  3. FOSAMAX [Concomitant]
  4. LASIX [Concomitant]
  5. LIPITOR [Concomitant]
  6. METOPROLOL [Concomitant]
  7. PENTASA [Concomitant]
  8. TAMOXIFEN [Concomitant]
  9. VITAMIN B12 [Concomitant]

REACTIONS (1)
  - Pancytopenia [Recovered/Resolved]
